FAERS Safety Report 23074635 (Version 1)
Quarter: 2023Q4

REPORT INFORMATION
  Report Type: Report from Study
  Country: CA (occurrence: None)
  Receive Date: 20231017
  Receipt Date: 20231017
  Transmission Date: 20240110
  Serious: Yes (Hospitalization)
  Sender: FDA-Public Use
  Company Number: CA-ROCHE-3438099

PATIENT
  Age: 62 Year
  Sex: Male
  Weight: 90 kg

DRUGS (3)
  1. RITUXIMAB [Suspect]
     Active Substance: RITUXIMAB
     Indication: Follicular lymphoma
     Dosage: (799 MG) FOR 5 CYCLES?LAST DOSE OF RITUXIMAB PRIOR TO THE SAE  WAS TAKEN ON 15/AUG/2023
     Route: 041
     Dates: start: 20230719
  2. TAFASITAMAB-CXIX [Suspect]
     Active Substance: TAFASITAMAB-CXIX
     Indication: Follicular lymphoma
     Dosage: 12 CYCLES WEEKLY THE FIRST 3 CYCLES?LAST DOSE OF TAFASITAMAB PRIOR TO THE SAES WAS TAKEN ON 22/AUG/2
     Route: 042
     Dates: start: 20230718, end: 20230824
  3. LENALIDOMIDE [Suspect]
     Active Substance: LENALIDOMIDE
     Indication: Follicular lymphoma
     Dosage: DAYS 1 TO 21 FOR 12 CYCLES?LAST DOSE OF LENALIDOMIDE PRIOR TO THE SAE WAS TAKEN ON 24/AUG/2023
     Route: 048
     Dates: start: 20230718

REACTIONS (3)
  - Pneumonia [Recovering/Resolving]
  - Sepsis [Recovering/Resolving]
  - Acute kidney injury [Recovering/Resolving]

NARRATIVE: CASE EVENT DATE: 20230824
